FAERS Safety Report 4933893-X (Version None)
Quarter: 2006Q1

REPORT INFORMATION
  Report Type: 
  Country: None (occurrence: None)
  Receive Date: 20060307
  Receipt Date: 20040629
  Transmission Date: 20060701
  Serious: Yes (Hospitalization)
  Sender: FDA-Public Use
  Company Number: US-RB-791-2004

PATIENT
  Sex: Male
  Weight: 68.1 kg

DRUGS (6)
  1. SUBOXONE [Suspect]
     Dosage: LOT# - NI WITH NI EXP.DATE
     Dates: start: 20020115, end: 20020117
  2. IBUPROFEN [Concomitant]
     Indication: PAIN
     Route: 048
  3. IBUPROFEN [Concomitant]
  4. CHLORPROMAZINE HCL [Concomitant]
     Indication: AGITATION
  5. METHOCARBAMOL [Concomitant]
     Indication: DRUG USE FOR UNKNOWN INDICATION
  6. DICYCLOMINE HCL [Concomitant]
     Dosage: UNKNOWN DOSAGE

REACTIONS (4)
  - HAEMATEMESIS [None]
  - HICCUPS [None]
  - OESOPHAGEAL RUPTURE [None]
  - VOMITING [None]
